FAERS Safety Report 10161113 (Version 1)
Quarter: 2014Q2

REPORT INFORMATION
  Report Type: Spontaneous
  Country: US (occurrence: US)
  Receive Date: 20140508
  Receipt Date: 20140508
  Transmission Date: 20141212
  Serious: No
  Sender: FDA-Public Use
  Company Number: US-PFIZER INC-2014121999

PATIENT
  Age: 51 Year
  Sex: Female

DRUGS (10)
  1. LIPITOR [Suspect]
     Dosage: UNK
  2. AMOXICILLIN [Suspect]
     Dosage: UNK
  3. CLINDAMYCIN HCL [Suspect]
     Dosage: UNK
  4. ERYTHROMYCIN [Suspect]
     Dosage: UNK
  5. KEFLEX [Suspect]
     Dosage: UNK
  6. ZETIA [Suspect]
     Dosage: UNK
  7. NIACIN [Suspect]
     Dosage: UNK
  8. TRICOR [Suspect]
     Dosage: UNK
  9. BACTRIM [Suspect]
     Dosage: UNK
  10. TYLOX [Suspect]
     Dosage: UNK

REACTIONS (1)
  - Drug hypersensitivity [Unknown]
